FAERS Safety Report 5267333-0 (Version None)
Quarter: 2007Q1

REPORT INFORMATION
  Report Type: 
  Country: None (occurrence: None)
  Receive Date: 20070316
  Receipt Date: 20070314
  Transmission Date: 20070707
  Serious: Yes (Other)
  Sender: FDA-Public Use
  Company Number: HQ5520726NOV2002

PATIENT
  Sex: Male
  Weight: 2.64 kg

DRUGS (10)
  1. RAPAMUNE [Suspect]
     Indication: PROPHYLAXIS AGAINST TRANSPLANT REJECTION
     Route: 064
     Dates: start: 20020115, end: 20020215
  2. PREDNISONE [Concomitant]
     Indication: PROPHYLAXIS AGAINST TRANSPLANT REJECTION
     Route: 064
     Dates: start: 20020115
  3. NORVASC [Concomitant]
     Indication: HYPERTENSION
     Route: 064
     Dates: start: 20020115, end: 20020222
  4. PROCARDIA [Concomitant]
     Indication: HYPERTENSION
     Dosage: 20 MG Q6H PRN
     Route: 064
     Dates: start: 20020901, end: 20020901
  5. PRENATAL VITAMIN/ MINERAL SUPPLEMENT [Concomitant]
     Dosage: 1 UNIT EVERY 1 DAY
     Route: 064
     Dates: start: 20020215, end: 20020913
  6. NIFEREX [Concomitant]
     Indication: HAEMATOCRIT DECREASED
     Route: 064
     Dates: start: 20020426
  7. ALDOMET [Concomitant]
     Indication: HYPERTENSION
     Route: 064
     Dates: start: 20020816, end: 20020913
  8. NEORAL [Concomitant]
     Indication: PROPHYLAXIS AGAINST TRANSPLANT REJECTION
     Dosage: 100 MG AM, 75 MG PM
     Route: 064
     Dates: start: 20020115
  9. NEORAL [Concomitant]
     Route: 064
  10. IMURAN [Concomitant]
     Indication: PROPHYLAXIS AGAINST TRANSPLANT REJECTION
     Route: 064
     Dates: start: 20020215, end: 20020913

REACTIONS (2)
  - DRUG EXPOSURE DURING PREGNANCY [None]
  - PREMATURE BABY [None]
